FAERS Safety Report 19246624 (Version 1)
Quarter: 2021Q2

REPORT INFORMATION
  Report Type: Spontaneous
  Country: US (occurrence: US)
  Receive Date: 20210512
  Receipt Date: 20210512
  Transmission Date: 20210717
  Serious: Yes (Hospitalization)
  Sender: FDA-Public Use
  Company Number: None

PATIENT
  Age: 71 Year
  Sex: Male
  Weight: 72.6 kg

DRUGS (1)
  1. RADIUM?223 DIHCHLORIDE (BAY 88?8223) [Suspect]
     Active Substance: RADIUM RA-223 DICHLORIDE
     Dates: end: 20210426

REACTIONS (4)
  - Decreased appetite [None]
  - Constipation [None]
  - Dyspnoea [None]
  - Abdominal pain [None]

NARRATIVE: CASE EVENT DATE: 20210503
